FAERS Safety Report 4394550-4 (Version None)
Quarter: 2004Q3

REPORT INFORMATION
  Report Type: 
  Country: None (occurrence: None)
  Receive Date: 20040707
  Receipt Date: 20040624
  Transmission Date: 20050211
  Serious: Yes (Hospitalization)
  Sender: FDA-Public Use
  Company Number: 04P-163-0264793-00

PATIENT
  Age: 37 Year
  Sex: Female
  Weight: 68.0396 kg

DRUGS (7)
  1. HUMIRA [Suspect]
     Indication: RHEUMATOID ARTHRITIS
     Dosage: 40 MG, 1 IN 2 WK, SUBCUTANEOUS
     Route: 058
     Dates: start: 20040518
  2. ROFECOXIB [Concomitant]
  3. FOLGARD [Concomitant]
  4. SELEXA [Concomitant]
  5. PANTOPRAZOLE [Concomitant]
  6. LANSOPRAZOLE [Concomitant]
  7. MESALAMINE [Concomitant]

REACTIONS (12)
  - BRONCHITIS [None]
  - CONDITION AGGRAVATED [None]
  - DEPRESSION [None]
  - GENERALISED ANXIETY DISORDER [None]
  - LUPUS-LIKE SYNDROME [None]
  - PAIN [None]
  - PNEUMONIA [None]
  - REFUSAL OF TREATMENT BY PATIENT [None]
  - SLEEP DISORDER [None]
  - SOMATISATION DISORDER [None]
  - SUICIDAL IDEATION [None]
  - TREATMENT NONCOMPLIANCE [None]
